FAERS Safety Report 7629536-7 (Version None)
Quarter: 2011Q3

REPORT INFORMATION
  Report Type: 
  Country: None (occurrence: None)
  Receive Date: 20110722
  Receipt Date: 20110715
  Transmission Date: 20111222
  Serious: Yes (Other)
  Sender: FDA-Public Use
  Company Number: DE-TYCO HEALTHCARE/MALLINCKRODT-T201101247

PATIENT
  Sex: Female
  Weight: 86 kg

DRUGS (11)
  1. ANASTROZOLE [Concomitant]
  2. CIMISAN T [Concomitant]
  3. TRIMIPRAMINE MALEATE [Concomitant]
  4. METFORMIN HCL [Concomitant]
  5. CELEBREX [Concomitant]
  6. LORATADINE [Concomitant]
  7. TECHNETIUM TC 99M GENERATOR [Suspect]
     Indication: BONE SCAN
     Dosage: 821 MBQ, SINGLE
     Route: 042
     Dates: start: 20110504, end: 20110504
  8. ZOMETA [Concomitant]
  9. METOPROLOL TARTRATE [Concomitant]
  10. TECHNESCAN [Suspect]
     Indication: BONE SCAN
     Dosage: UNK
     Route: 042
     Dates: start: 20110504, end: 20110504
  11. LEVOTHYROXINE SODIUM [Concomitant]

REACTIONS (6)
  - INJECTION SITE WARMTH [None]
  - INJECTION SITE INFLAMMATION [None]
  - INJECTION SITE HAEMATOMA [None]
  - INJECTION SITE ERYTHEMA [None]
  - INJECTION SITE SWELLING [None]
  - PYREXIA [None]
